FAERS Safety Report 5444102-X (Version None)
Quarter: 2007Q3

REPORT INFORMATION
  Report Type: 
  Country: None (occurrence: None)
  Receive Date: 20070905
  Receipt Date: 20070827
  Transmission Date: 20080115
  Serious: Yes (Hospitalization)
  Sender: FDA-Public Use
  Company Number: US-SHR-US-2007-032343

PATIENT

DRUGS (1)
  1. LEUKINE [Suspect]

REACTIONS (1)
  - CONVULSION [None]
